FAERS Safety Report 6694318-X (Version None)
Quarter: 2010Q2

REPORT INFORMATION
  Report Type: 
  Country: None (occurrence: None)
  Receive Date: 20100423
  Receipt Date: 20100413
  Transmission Date: 20101027
  Serious: Yes (Hospitalization)
  Sender: FDA-Public Use
  Company Number: FR-PFIZER INC-2010046137

PATIENT
  Age: 50 Year
  Sex: Female
  Weight: 64 kg

DRUGS (11)
  1. ALDACTONE [Suspect]
     Indication: OEDEMA
     Dosage: 75 MG, 1X/DAY
     Route: 048
     Dates: start: 20090619, end: 20090828
  2. EQUANIL [Suspect]
     Indication: DELIRIUM TREMENS
     Dosage: 400 MG, 3X/DAY
     Route: 048
     Dates: start: 20090616, end: 20090828
  3. AOTAL [Suspect]
     Indication: ALCOHOL ABUSE
     Dosage: 333 MG, 3X/DAY
     Route: 048
     Dates: start: 20090616, end: 20090814
  4. VITAMIN B1 TAB [Suspect]
     Indication: VITAMIN B1 DEFICIENCY
     Dosage: 2 DF, 2X/DAY
     Route: 048
     Dates: start: 20090608, end: 20090821
  5. VITAMIN B6 [Suspect]
     Indication: VITAMIN B6 DEFICIENCY
     Dosage: 2 DF, 2X/DAY
     Route: 048
     Dates: start: 20090608, end: 20090821
  6. TORENTAL [Concomitant]
     Indication: HEPATITIS ALCOHOLIC
     Dosage: 1200 MG, 1X/DAY
     Route: 048
     Dates: start: 20090601, end: 20090716
  7. SOLUPRED [Concomitant]
     Indication: HEPATITIS ALCOHOLIC
     Dosage: 40 MG, 1X/DAY
     Route: 048
     Dates: start: 20090611, end: 20090716
  8. AMOXICILLIN TRIHYDRATE [Concomitant]
     Indication: INFECTION
     Dosage: UNK
     Route: 048
     Dates: start: 20090601, end: 20090701
  9. AMOXICILLIN TRIHYDRATE [Concomitant]
     Dosage: UNK
     Dates: start: 20090814, end: 20090822
  10. LASIX [Concomitant]
     Dosage: UNK
     Dates: start: 20090716
  11. QUESTRAN [Concomitant]

REACTIONS (3)
  - EOSINOPHILIA [None]
  - ERYTHEMA [None]
  - PRURITUS [None]
